FAERS Safety Report 7985592-8 (Version None)
Quarter: 2011Q4

REPORT INFORMATION
  Report Type: 
  Country: None (occurrence: None)
  Receive Date: 20111216
  Receipt Date: 20111202
  Transmission Date: 20120403
  Serious: Yes (Death, Life-Threatening, Hospitalization)
  Sender: FDA-Public Use
  Company Number: AU-BRISTOL-MYERS SQUIBB COMPANY-14669816

PATIENT
  Age: 73 Year
  Sex: Male
  Weight: 70 kg

DRUGS (15)
  1. CARDIZEM [Concomitant]
     Indication: HYPERTENSION
     Dates: start: 20090502
  2. DEXAMETHASONE [Concomitant]
     Dates: start: 20090528
  3. FENTANYL [Concomitant]
     Indication: PAIN
     Dates: start: 20090619
  4. DILTIAZEM HCL [Concomitant]
     Dates: start: 20090424
  5. COLOXYL + SENNA [Concomitant]
     Dates: start: 20090325
  6. ALPRAZOLAM [Concomitant]
     Dates: start: 20081117
  7. METOCLOPRAMIDE [Concomitant]
     Indication: NAUSEA
     Dates: start: 20090609
  8. ACTILAX [Concomitant]
     Dosage: SYRUP
     Dates: start: 20090424
  9. CETUXIMAB [Suspect]
     Dosage: LOADING DOSE 800 MG
     Route: 042
     Dates: start: 20090422, end: 20090609
  10. KETAMINE HCL [Concomitant]
     Indication: PAIN
     Dosage: ALSO TAKEN ON 09JUN09
     Dates: start: 20090501
  11. PANTOPRAZOLE [Concomitant]
     Dates: start: 20090424
  12. BRIVANIB ALANINATE [Suspect]
     Indication: COLORECTAL CANCER METASTATIC
     Route: 048
     Dates: start: 20090421, end: 20090616
  13. CETUXIMAB [Suspect]
     Indication: COLORECTAL CANCER METASTATIC
     Route: 042
     Dates: start: 20090422, end: 20090609
  14. MORPHINE [Concomitant]
     Indication: PAIN
     Dosage: ALSO TAKEN ON 19JUN09
     Dates: start: 20090501
  15. MOVIPREP [Concomitant]
     Dates: start: 20090527

REACTIONS (6)
  - DEHYDRATION [None]
  - PNEUMONIA [None]
  - STAPHYLOCOCCAL SEPSIS [None]
  - THROMBOCYTOPENIA [None]
  - HYPERBILIRUBINAEMIA [None]
  - HYPOALBUMINAEMIA [None]
